FAERS Safety Report 14530312 (Version 3)
Quarter: 2018Q2

REPORT INFORMATION
  Report Type: Spontaneous
  Country: US (occurrence: US)
  Receive Date: 20180214
  Receipt Date: 20180620
  Transmission Date: 20180711
  Serious: No
  Sender: FDA-Public Use
  Company Number: US-GLAXOSMITHKLINE-US2016200169

PATIENT
  Age: 61 Year
  Sex: Female

DRUGS (2)
  1. NICORETTE [Suspect]
     Active Substance: NICOTINE
     Indication: SMOKING CESSATION THERAPY
     Dosage: 4 UNK, UNK
  2. NICORETTE [Suspect]
     Active Substance: NICOTINE
     Dosage: 4 MG, UNK
     Dates: start: 20180423, end: 20180423

REACTIONS (5)
  - Oral discomfort [Unknown]
  - Nausea [Unknown]
  - Product quality issue [Unknown]
  - Malaise [Not Recovered/Not Resolved]
  - Dysgeusia [Unknown]

NARRATIVE: CASE EVENT DATE: 20180423
